FAERS Safety Report 8344985-X (Version None)
Quarter: 2012Q2

REPORT INFORMATION
  Report Type: 
  Country: None (occurrence: None)
  Receive Date: 20120508
  Receipt Date: 20120424
  Transmission Date: 20120825
  Serious: Yes (Other)
  Sender: FDA-Public Use
  Company Number: US-ELI_LILLY_AND_COMPANY-US201204008587

PATIENT
  Sex: Female
  Weight: 52.608 kg

DRUGS (7)
  1. LYRICA [Concomitant]
     Dosage: 100 MG, QD
     Dates: end: 20120301
  2. KLONOPIN [Concomitant]
     Indication: MYOCLONUS
     Dosage: 2 MG, QD
  3. TRAZODONE HCL [Concomitant]
     Indication: MYOCLONUS
     Dosage: 50 MG, QD
  4. LYRICA [Concomitant]
     Indication: PAIN
     Dosage: 50 MG, QD
     Route: 048
     Dates: start: 20120127
  5. LYRICA [Concomitant]
     Dosage: 175 MG, UNK
  6. NUCYNTA [Concomitant]
     Indication: PAIN
     Dosage: 100 MG, BID
  7. CYMBALTA [Suspect]
     Indication: DEPRESSION
     Dosage: 60 MG, BID

REACTIONS (3)
  - PRURITUS GENERALISED [None]
  - DEPRESSION [None]
  - BLISTER [None]
